FAERS Safety Report 17020726 (Version 1)
Quarter: 2019Q4

REPORT INFORMATION
  Report Type: Spontaneous
  Country: US (occurrence: US)
  Receive Date: 20191112
  Receipt Date: 20191112
  Transmission Date: 20200122
  Serious: Yes (Life-Threatening, Hospitalization, Other)
  Sender: FDA-Public Use
  Company Number: US-MYLANLABS-2019M1105251

PATIENT
  Age: 38 Year
  Sex: Male

DRUGS (4)
  1. AMIODARONE [Concomitant]
     Active Substance: AMIODARONE
     Indication: VENTRICULAR TACHYCARDIA
     Route: 040
  2. LOPERAMIDE [Suspect]
     Active Substance: LOPERAMIDE
     Indication: ABDOMINAL DISCOMFORT
     Dosage: 50 DOSAGE FORM, QD
     Route: 065
  3. AMIODARONE [Suspect]
     Active Substance: AMIODARONE
     Indication: VENTRICULAR TACHYCARDIA
     Route: 042
  4. LIDOCAINE. [Concomitant]
     Active Substance: LIDOCAINE
     Indication: VENTRICULAR TACHYCARDIA
     Route: 040

REACTIONS (12)
  - Drug abuse [Recovering/Resolving]
  - Sinus bradycardia [Recovering/Resolving]
  - Ventricular hypokinesia [Recovering/Resolving]
  - Bradycardia [Recovering/Resolving]
  - Electrocardiogram QT prolonged [Recovering/Resolving]
  - Overdose [Recovering/Resolving]
  - Hypotension [Recovering/Resolving]
  - Drug ineffective [Unknown]
  - Right ventricular dilatation [Recovering/Resolving]
  - Ventricular tachycardia [Recovering/Resolving]
  - Atrial fibrillation [Recovering/Resolving]
  - Bundle branch block bilateral [Recovering/Resolving]
